FAERS Safety Report 17809052 (Version 3)
Quarter: 2020Q3

REPORT INFORMATION
  Report Type: Spontaneous
  Country: US (occurrence: US)
  Receive Date: 20200520
  Receipt Date: 20200702
  Transmission Date: 20201102
  Serious: Yes (Other)
  Sender: FDA-Public Use
  Company Number: US-ALLERGAN-2006694US

PATIENT
  Sex: Female

DRUGS (4)
  1. ALPHAGAN P [Interacting]
     Active Substance: BRIMONIDINE TARTRATE
     Indication: GLAUCOMA
     Dosage: 2 GTT, BID
     Route: 047
     Dates: start: 202001, end: 202003
  2. ROSUVASTATIN. [Concomitant]
     Active Substance: ROSUVASTATIN
     Indication: BLOOD CHOLESTEROL INCREASED
  3. REFRESH RELIEVA [Suspect]
     Active Substance: CARBOXYMETHYLCELLULOSE SODIUM\GLYCERIN
     Indication: DRY EYE
     Dosage: 2 GTT, QID
     Route: 047
  4. LOSARTAN. [Concomitant]
     Active Substance: LOSARTAN
     Indication: HYPERTENSION
     Dosage: UNK
     Dates: start: 2016

REACTIONS (10)
  - Therapy cessation [Unknown]
  - Ocular hyperaemia [Recovered/Resolved]
  - Blindness transient [Recovered/Resolved]
  - Ocular discomfort [Recovered/Resolved]
  - Eye swelling [Recovered/Resolved]
  - Reaction to preservatives [Recovered/Resolved]
  - Foreign body sensation in eyes [Recovered/Resolved]
  - Eye discharge [Unknown]
  - Eye irritation [Recovered/Resolved]
  - Product storage error [Unknown]

NARRATIVE: CASE EVENT DATE: 2020
